FAERS Safety Report 18595704 (Version 4)
Quarter: 2023Q1

REPORT INFORMATION
  Report Type: Spontaneous
  Country: US (occurrence: US)
  Receive Date: 20201209
  Receipt Date: 20230206
  Transmission Date: 20230417
  Serious: No
  Sender: FDA-Public Use
  Company Number: US-PFIZER INC-2020483851

PATIENT
  Age: 73 Year
  Sex: Female
  Weight: 56.689 kg

DRUGS (7)
  1. IBRANCE [Suspect]
     Active Substance: PALBOCICLIB
     Indication: Breast cancer metastatic
     Dosage: 125 MG
     Dates: start: 202006
  2. IBRANCE [Suspect]
     Active Substance: PALBOCICLIB
     Dosage: 125 MG, 1X/DAY
     Dates: start: 20201020
  3. FASLODEX [Concomitant]
     Active Substance: FULVESTRANT
     Dosage: UNK, EVERY 4 WEEKS
     Dates: start: 20201020
  4. DOCETAXEL [Concomitant]
     Active Substance: DOCETAXEL
     Dosage: UNK
     Dates: start: 20210219
  5. PERTUZUMAB [Concomitant]
     Active Substance: PERTUZUMAB
     Dosage: UNK, EVERY 3 WEEKS
     Route: 041
     Dates: start: 20210219
  6. TRASTUZUMAB [Concomitant]
     Active Substance: TRASTUZUMAB
     Dosage: UNK, EVERY 3 WEEKS
     Route: 041
     Dates: start: 20210219
  7. ZOMETA [Concomitant]
     Active Substance: ZOLEDRONIC ACID
     Dosage: UNK, EVERY 3 MONTHS
     Route: 041
     Dates: start: 2021

REACTIONS (4)
  - Somnolence [Unknown]
  - Alopecia [Recovered/Resolved]
  - Diarrhoea [Recovered/Resolved]
  - Haemoglobin decreased [Not Recovered/Not Resolved]

NARRATIVE: CASE EVENT DATE: 20200620
